FAERS Safety Report 13125175 (Version 1)
Quarter: 2017Q1

REPORT INFORMATION
  Report Type: Spontaneous
  Country: US (occurrence: US)
  Receive Date: 20170117
  Receipt Date: 20170117
  Transmission Date: 20170428
  Serious: Yes (Hospitalization)
  Sender: FDA-Public Use
  Company Number: None

PATIENT
  Age: 44 Year
  Sex: Female
  Weight: 74.25 kg

DRUGS (24)
  1. AMIODARONE AND ALPRAZOLAM METRONICS SECURA DR DEFIBRILLATOR [Concomitant]
  2. FLONASE [Concomitant]
     Active Substance: FLUTICASONE PROPIONATE
  3. TRULICITY [Concomitant]
     Active Substance: DULAGLUTIDE
  4. TORSEMIDE. [Concomitant]
     Active Substance: TORSEMIDE
  5. METOPROLOL. [Concomitant]
     Active Substance: METOPROLOL
  6. MOVANTIK [Suspect]
     Active Substance: NALOXEGOL OXALATE
     Indication: CONSTIPATION
     Dosage: ?          QUANTITY:1 TABLET(S);?
     Route: 048
     Dates: start: 20150501, end: 20150921
  7. METFORMIN [Concomitant]
     Active Substance: METFORMIN HYDROCHLORIDE
  8. NITROGLYCERINE PATCH [Concomitant]
  9. PROMETHAZINE (PILL AND SUPPOSITORY) [Concomitant]
  10. COUMADIN [Concomitant]
     Active Substance: WARFARIN SODIUM
  11. METHIMAZOLE. [Concomitant]
     Active Substance: METHIMAZOLE
  12. NASAL SALINE [Concomitant]
     Active Substance: SODIUM CHLORIDE
  13. GABAPENTIN. [Concomitant]
     Active Substance: GABAPENTIN
  14. PRAVASTATIN. [Concomitant]
     Active Substance: PRAVASTATIN
  15. DILAUDID [Concomitant]
     Active Substance: HYDROMORPHONE HYDROCHLORIDE
  16. FIORICET WITH CODEINE [Concomitant]
     Active Substance: ACETAMINOPHEN\BUTALBITAL\CAFFEINE\CODEINE PHOSPHATE
  17. CYPROHEPTADINE. [Concomitant]
     Active Substance: CYPROHEPTADINE
  18. FENTANYL TRANSDERMAL SYSTEM [Concomitant]
     Active Substance: FENTANYL
  19. VITAMIN D [Concomitant]
     Active Substance: CHOLECALCIFEROL
  20. KLORCON [Concomitant]
  21. MAGNESIUM [Concomitant]
     Active Substance: MAGNESIUM
  22. MORPHINE [Concomitant]
     Active Substance: MORPHINE
  23. FLEXARIL [Concomitant]
  24. BARD MEDIPORT [Concomitant]

REACTIONS (9)
  - Tachycardia [None]
  - Restlessness [None]
  - Hyperhidrosis [None]
  - Nausea [None]
  - Irritability [None]
  - Diarrhoea [None]
  - Withdrawal syndrome [None]
  - Chest pain [None]
  - Abdominal pain upper [None]

NARRATIVE: CASE EVENT DATE: 20150921
